FAERS Safety Report 5638299-6 (Version None)
Quarter: 2008Q1

REPORT INFORMATION
  Report Type: 
  Country: None (occurrence: None)
  Receive Date: 20080222
  Receipt Date: 20080214
  Transmission Date: 20080703
  Serious: Yes (Other)
  Sender: FDA-Public Use
  Company Number: DSU-2008-00225

PATIENT
  Age: 61 Year
  Sex: Male

DRUGS (4)
  1. OLMESARTAN MEDOXOMIL [Suspect]
     Indication: HYPERTENSION
     Dosage: 40 MG (20 MG, BID), 2
     Dates: start: 20050101
  2. IMPERIO [Concomitant]
  3. ZANETIT [Concomitant]
  4. MODURETIC (AMILORIDE HYDROCHLORIDE+HYDROCHLOROTHIAZIDE)(HYDROCHLOROTHI [Concomitant]

REACTIONS (1)
  - BLOOD PRESSURE DECREASED [None]
